FAERS Safety Report 7461743-9 (Version None)
Quarter: 2011Q2

REPORT INFORMATION
  Report Type: 
  Country: None (occurrence: None)
  Receive Date: 20110506
  Receipt Date: 20110427
  Transmission Date: 20111010
  Serious: Yes (Other)
  Sender: FDA-Public Use
  Company Number: US-BAYER-2011-036840

PATIENT
  Sex: Male
  Weight: 60 kg

DRUGS (5)
  1. VIDAZA [Concomitant]
  2. SORAFENIB (RAF KINASE INHIBITOR) [Suspect]
     Indication: TONGUE NEOPLASM MALIGNANT STAGE UNSPECIFIED
     Dosage: 400 MG, DAILY
     Route: 048
     Dates: start: 20100616, end: 20110211
  3. SODIUM FLUORIDE [Concomitant]
     Dosage: 1 DF, UNK
     Dates: start: 20110411
  4. SORAFENIB (RAF KINASE INHIBITOR) [Suspect]
     Indication: TONSIL CANCER
  5. CHLORHEXIDINE GLUCONATE [Concomitant]
     Dosage: 473 ML, UNK
     Dates: start: 20110411

REACTIONS (1)
  - CARDIO-RESPIRATORY ARREST [None]
